FAERS Safety Report 10594432 (Version 1)
Quarter: 2014Q4

REPORT INFORMATION
  Report Type: Spontaneous
  Country: GB (occurrence: GB)
  Receive Date: 20141119
  Receipt Date: 20141119
  Transmission Date: 20150529
  Serious: Yes (Hospitalization, Other)
  Sender: FDA-Public Use
  Company Number: GB-ABBVIE-14K-167-1308961-00

PATIENT
  Sex: Female

DRUGS (1)
  1. HUMIRA [Suspect]
     Active Substance: ADALIMUMAB
     Indication: PRODUCT USED FOR UNKNOWN INDICATION
     Route: 065

REACTIONS (10)
  - Loss of consciousness [Unknown]
  - Joint dislocation [Unknown]
  - Traumatic renal injury [Unknown]
  - Fall [Unknown]
  - Rib fracture [Unknown]
  - Ligament sprain [Unknown]
  - Concussion [Unknown]
  - Intestinal dilatation [Unknown]
  - Kidney enlargement [Unknown]
  - Brain oedema [Unknown]
